FAERS Safety Report 5522090-5 (Version None)
Quarter: 2007Q4

REPORT INFORMATION
  Report Type: 
  Country: None (occurrence: None)
  Receive Date: 20071115
  Receipt Date: 20071031
  Transmission Date: 20080405
  Serious: Yes (Hospitalization)
  Sender: FDA-Public Use
  Company Number: 2007S1010794

PATIENT
  Age: 60 Year
  Sex: Female

DRUGS (5)
  1. METHYLPREDNISOLONE [Suspect]
     Dosage: 30 MG; DAILY; INTRAVENOUS
     Route: 042
     Dates: start: 20070816, end: 20070820
  2. METHOTREXATE [Suspect]
     Indication: LYMPHOMA
     Dosage: 4600 MG; DAILY; INTRAVENOUS
     Route: 042
     Dates: start: 20070816, end: 20070816
  3. ETOPOSIDE [Suspect]
     Dosage: 150 MG; DAILY; INTRAVENOUS
     Route: 042
     Dates: start: 20070817, end: 20070817
  4. ELVORINE (CALCIUM LEVOFOLINATE) [Suspect]
     Dosage: 50 MG; DAILY; INTRAVENOUS
     Route: 042
     Dates: start: 20070817, end: 20070820
  5. BICNU [Suspect]
     Dosage: 150 MG; DAILY;
     Dates: start: 20070818, end: 20070818

REACTIONS (3)
  - CAMPYLOBACTER INFECTION [None]
  - CULTURE STOOL POSITIVE [None]
  - HYPERTHERMIA [None]
